FAERS Safety Report 13246686 (Version 1)
Quarter: 2017Q1

REPORT INFORMATION
  Report Type: Spontaneous
  Country: FR (occurrence: FR)
  Receive Date: 20170217
  Receipt Date: 20170217
  Transmission Date: 20170428
  Serious: Yes (Death, Hospitalization, Other)
  Sender: FDA-Public Use
  Company Number: FR-BRISTOL-MYERS SQUIBB COMPANY-BMS-2017-011368

PATIENT
  Age: 71 Year
  Sex: Male

DRUGS (1)
  1. OPDIVO [Suspect]
     Active Substance: NIVOLUMAB
     Indication: SQUAMOUS CELL CARCINOMA
     Dosage: 10 MG/ML, UNK
     Route: 065
     Dates: start: 20151029, end: 20151231

REACTIONS (6)
  - Respiratory distress [Fatal]
  - Lung disorder [Fatal]
  - Aspiration pleural cavity [Unknown]
  - Pleural effusion [Unknown]
  - Bronchoalveolar lavage [Unknown]
  - Product used for unknown indication [Unknown]

NARRATIVE: CASE EVENT DATE: 20151224
